FAERS Safety Report 5583010-0 (Version None)
Quarter: 2007Q4

REPORT INFORMATION
  Report Type: 
  Country: None (occurrence: None)
  Receive Date: 20071231
  Receipt Date: 20071227
  Transmission Date: 20080405
  Serious: Yes (Hospitalization)
  Sender: FDA-Public Use
  Company Number: TCI2007A06354

PATIENT
  Age: 58 Year
  Sex: Female

DRUGS (7)
  1. LANSOPRAZOLE [Suspect]
     Indication: GASTRIC ULCER
     Dosage: 30 MG (30 MG, 1 IN 1 D) PER ORAL; 60 MG (30 MG, 2 IN 1 D) PER ORAL
     Route: 048
     Dates: start: 20071110, end: 20071111
  2. LANSOPRAZOLE [Suspect]
     Indication: HELICOBACTER INFECTION
     Dosage: 30 MG (30 MG, 1 IN 1 D) PER ORAL; 60 MG (30 MG, 2 IN 1 D) PER ORAL
     Route: 048
     Dates: start: 20071110, end: 20071111
  3. LANSOPRAZOLE [Suspect]
     Indication: GASTRIC ULCER
     Dosage: 30 MG (30 MG, 1 IN 1 D) PER ORAL; 60 MG (30 MG, 2 IN 1 D) PER ORAL
     Route: 048
     Dates: start: 20071112, end: 20071117
  4. LANSOPRAZOLE [Suspect]
     Indication: HELICOBACTER INFECTION
     Dosage: 30 MG (30 MG, 1 IN 1 D) PER ORAL; 60 MG (30 MG, 2 IN 1 D) PER ORAL
     Route: 048
     Dates: start: 20071112, end: 20071117
  5. AMOXICILLIN TRIHYDRATE [Suspect]
     Indication: HELICOBACTER INFECTION
     Dosage: 1500 MG (750 MG, 2 IN 1 D) PER ORAL
     Route: 048
     Dates: start: 20071112, end: 20071117
  6. FLAGYL [Suspect]
     Indication: HELICOBACTER INFECTION
     Dosage: 500 MG (250 MG, 2 IN 1 D) PER ORAL
     Route: 048
     Dates: start: 20071112, end: 20071117
  7. MICARDIS [Concomitant]

REACTIONS (3)
  - COLITIS ISCHAEMIC [None]
  - ESCHERICHIA INFECTION [None]
  - GASTROINTESTINAL EROSION [None]
